FAERS Safety Report 8053843-X (Version None)
Quarter: 2012Q1

REPORT INFORMATION
  Report Type: 
  Country: None (occurrence: None)
  Receive Date: 20120118
  Receipt Date: 20120111
  Transmission Date: 20120608
  Serious: Yes (Other)
  Sender: FDA-Public Use
  Company Number: DE-PFIZER INC-2012000074

PATIENT
  Age: 7 Day
  Sex: Female
  Weight: 2.6 kg

DRUGS (14)
  1. FUROSEMIDE [Concomitant]
     Dosage: 10 MG/KG X D
  2. NOREPINEPHRINE BITARTRATE [Concomitant]
     Dosage: 0.1 UG/KG X MIN.
  3. NITRAZEPAM [Concomitant]
  4. REVATIO [Suspect]
     Indication: VENTRICULAR HYPOPLASIA
  5. THEOPHYLLINE [Concomitant]
     Dosage: 10 MG/KG X D
  6. ALT-INSULIN [Concomitant]
  7. CEFUROXIME [Concomitant]
  8. REVATIO [Suspect]
     Indication: PULMONARY HYPOPLASIA
     Dosage: 0.5 MG, UNK
     Route: 042
  9. REVATIO [Suspect]
     Indication: CONGENITAL AORTIC ANOMALY
  10. MILRINONE [Concomitant]
     Dosage: 0.3 UG/KG X MIN.
  11. SUPRARENIN [Concomitant]
     Dosage: 0.23 UG/KG X MIN.
  12. FENTANYL [Concomitant]
  13. HEPARIN [Concomitant]
  14. REVATIO [Suspect]
     Indication: VENTRICULAR SEPTAL DEFECT

REACTIONS (1)
  - HYPOTENSION [None]
